FAERS Safety Report 5413166-1 (Version None)
Quarter: 2007Q3

REPORT INFORMATION
  Report Type: 
  Country: None (occurrence: None)
  Receive Date: 20070810
  Receipt Date: 20070720
  Transmission Date: 20080115
  Serious: Yes (Other)
  Sender: FDA-Public Use
  Company Number: 2007RR-08855

PATIENT
  Age: 35 Year
  Sex: Female

DRUGS (1)
  1. MINOCYCLINE HYDROCHLORIDE [Suspect]
     Indication: ACNE
     Dosage: 50-100

REACTIONS (4)
  - ERYTHEMA NODOSUM [None]
  - HEPATIC ENZYME INCREASED [None]
  - THROMBOSIS [None]
  - VASCULITIS NECROTISING [None]
